FAERS Safety Report 8289921-X (Version None)
Quarter: 2012Q2

REPORT INFORMATION
  Report Type: 
  Country: None (occurrence: None)
  Receive Date: 20120417
  Receipt Date: 20120407
  Transmission Date: 20120825
  Serious: Yes (Death)
  Sender: FDA-Public Use
  Company Number: AT-VERTEX PHARMACEUTICALS INC.-000000000000000362

PATIENT
  Sex: Male
  Weight: 94 kg

DRUGS (10)
  1. SEROQUEL [Concomitant]
  2. FLUTICASONE PROPIONATE/SALMETEROL [Concomitant]
  3. DAXAS [Concomitant]
  4. SPIRIVA [Concomitant]
  5. NEBIVOLOL [Concomitant]
  6. INCIVO (TELAPREVIR) [Suspect]
     Indication: HEPATITIS C
     Dosage: DOSAGE FORM: TABLET
     Dates: start: 20111222, end: 20120316
  7. UROSIN [Concomitant]
  8. PANTOPRAZOLE SODIUM [Concomitant]
  9. INTERFERON [Concomitant]
  10. LASILACTONE [Concomitant]

REACTIONS (4)
  - CARDIOGENIC SHOCK [None]
  - MYOCARDIAL INFARCTION [None]
  - PULMONARY OEDEMA [None]
  - CARDIAC FAILURE [None]
